FAERS Safety Report 22229929 (Version 2)
Quarter: 2023Q2

REPORT INFORMATION
  Report Type: Report from Study
  Country: US (occurrence: US)
  Receive Date: 20230419
  Receipt Date: 20230630
  Transmission Date: 20230721
  Serious: Yes (Hospitalization)
  Sender: FDA-Public Use
  Company Number: US-JAZZ PHARMACEUTICALS-202203USGW01328

PATIENT
  Age: 16 Year
  Sex: Female
  Weight: 68.2 kg

DRUGS (2)
  1. EPIDIOLEX [Suspect]
     Active Substance: CANNABIDIOL
     Indication: Product used for unknown indication
     Dosage: 1300 MILLIGRAM, BID
     Route: 048
     Dates: end: 202202
  2. EPIDIOLEX [Suspect]
     Active Substance: CANNABIDIOL
     Dosage: 1400 MILLIGRAM, BID
     Route: 048
     Dates: start: 202202

REACTIONS (3)
  - Hospitalisation [Unknown]
  - Seizure [Unknown]
  - Therapy change [Unknown]

NARRATIVE: CASE EVENT DATE: 20221115
